FAERS Safety Report 5022055-6 (Version None)
Quarter: 2006Q2

REPORT INFORMATION
  Report Type: 
  Country: None (occurrence: None)
  Receive Date: 20060609
  Receipt Date: 20060601
  Transmission Date: 20061013
  Serious: Yes (Hospitalization, Other)
  Sender: FDA-Public Use
  Company Number: US-ABBOTT-06P-163-0335062-00

PATIENT
  Sex: Female

DRUGS (10)
  1. VICODIN [Suspect]
     Indication: OSTEOARTHRITIS
     Dosage: 1-2 TABLETS, Q 4-6 HRS, AS REQUIRED
     Dates: start: 20050301, end: 20050317
  2. PARACETAMOL [Suspect]
     Indication: PAIN
     Dates: start: 20050301
  3. FENTANYL [Suspect]
     Indication: PAIN
     Dates: end: 20050301
  4. PROPACET 100 [Suspect]
     Indication: OSTEOARTHRITIS
  5. A BUNCH OF OTHER MEDICATIONS [Suspect]
     Indication: DRUG USE FOR UNKNOWN INDICATION
  6. LACTULOSE [Concomitant]
     Indication: DRUG USE FOR UNKNOWN INDICATION
  7. DOCUSATE SODIUM [Concomitant]
     Indication: DRUG USE FOR UNKNOWN INDICATION
  8. CALCIUM D3 ^STADA^ [Concomitant]
     Indication: DRUG USE FOR UNKNOWN INDICATION
  9. DIAZEPAM [Concomitant]
     Indication: DRUG USE FOR UNKNOWN INDICATION
  10. DONEPEZIL HYDROCHLORIDE [Concomitant]
     Indication: DRUG USE FOR UNKNOWN INDICATION
     Dates: start: 20050301

REACTIONS (3)
  - CONFUSIONAL STATE [None]
  - CONJUNCTIVITIS [None]
  - HALLUCINATION, VISUAL [None]
